FAERS Safety Report 5963991-3 (Version None)
Quarter: 2008Q4

REPORT INFORMATION
  Report Type: 
  Country: None (occurrence: None)
  Receive Date: 20081124
  Receipt Date: 20081120
  Transmission Date: 20090506
  Serious: Yes (Hospitalization, Other)
  Sender: FDA-Public Use
  Company Number: US-ROXANE LABORATORIES, INC.-2008-RO-00257RO

PATIENT

DRUGS (1)
  1. MEFLOQUINE [Suspect]

REACTIONS (2)
  - DRUG PRESCRIBING ERROR [None]
  - HOSPITALISATION [None]
